FAERS Safety Report 5200521-8 (Version None)
Quarter: 2006Q4

REPORT INFORMATION
  Report Type: 
  Country: None (occurrence: None)
  Receive Date: 20061016
  Receipt Date: 20060801
  Transmission Date: 20070319
  Serious: No
  Sender: FDA-Public Use
  Company Number: 2006SP002861

PATIENT
  Age: 74 Year
  Sex: Male
  Weight: 94.3482 kg

DRUGS (11)
  1. LUNESTA [Suspect]
     Indication: SLEEP DISORDER
     Dosage: 3 MG;HS;ORAL
     Route: 048
     Dates: start: 20060725
  2. POTASSIUM ACETATE [Concomitant]
  3. FUROSEMIDE [Concomitant]
  4. PREVACID [Concomitant]
  5. ALTACE [Concomitant]
  6. TRAZODONE HCL [Concomitant]
  7. SIMVASTATIN [Concomitant]
  8. FEXOFENADINE [Concomitant]
  9. WARFARIN SODIUM [Concomitant]
  10. METOPROLOL SUCCINATE [Concomitant]
  11. TEMAZEPAM [Concomitant]

REACTIONS (1)
  - DYSGEUSIA [None]
